FAERS Safety Report 4753096-1 (Version None)
Quarter: 2005Q3

REPORT INFORMATION
  Report Type: 
  Country: None (occurrence: None)
  Receive Date: 20050826
  Receipt Date: 20050314
  Transmission Date: 20060218
  Serious: Yes (Hospitalization, Other)
  Sender: FDA-Public Use
  Company Number: US-MERCK-0503USA02961

PATIENT
  Age: 65 Year
  Sex: Male
  Weight: 114 kg

DRUGS (10)
  1. GEMFIBROZIL [Concomitant]
     Indication: BLOOD CHOLESTEROL INCREASED
     Route: 065
     Dates: start: 19940618
  2. GLUCOTROL [Concomitant]
     Indication: DIABETES MELLITUS
     Route: 065
  3. AVANDIA [Concomitant]
     Indication: DIABETES MELLITUS
     Route: 065
  4. RENAGEL [Concomitant]
     Indication: PROSTATISM
     Route: 065
  5. AMBIEN [Concomitant]
     Indication: INSOMNIA
     Route: 065
  6. SYNTHROID [Concomitant]
     Indication: THYROID DISORDER
     Route: 065
  7. GLIPIZIDE [Concomitant]
     Indication: DIABETES MELLITUS
     Route: 065
  8. VIOXX [Suspect]
     Indication: OSTEOARTHRITIS
     Route: 048
     Dates: start: 20031101, end: 20040601
  9. VIOXX [Suspect]
     Indication: BACK PAIN
     Route: 048
     Dates: start: 20031101, end: 20040601
  10. ASPIRIN [Concomitant]
     Route: 065
     Dates: start: 20030101

REACTIONS (6)
  - ARRHYTHMIA [None]
  - CARDIAC FAILURE [None]
  - CEREBROVASCULAR ACCIDENT [None]
  - INSOMNIA [None]
  - MYOCARDIAL INFARCTION [None]
  - THYROID DISORDER [None]
